FAERS Safety Report 8780746 (Version 1)
Quarter: 2012Q4

REPORT INFORMATION
  Report Type: 
  Country: US (occurrence: US)
  Receive Date: 20120913
  Receipt Date: 20120913
  Transmission Date: 20130627
  Serious: No
  Sender: FDA-Public Use
  Company Number: US-PFIZER INC-2012224081

PATIENT
  Sex: Female

DRUGS (1)
  1. LYRICA [Suspect]
     Dosage: UNK
     Route: 048
     Dates: start: 2012, end: 20120910

REACTIONS (2)
  - Sleep disorder [Unknown]
  - Nervous system disorder [Unknown]
